FAERS Safety Report 9860723 (Version 1)
Quarter: 2014Q1

REPORT INFORMATION
  Report Type: Spontaneous
  Country: US (occurrence: US)
  Receive Date: 20140202
  Receipt Date: 20140202
  Transmission Date: 20141002
  Serious: No
  Sender: FDA-Public Use
  Company Number: US-ALLERGAN-1300566US

PATIENT
  Age: 57 Year
  Sex: Female

DRUGS (2)
  1. BOTOX COSMETIC [Suspect]
     Indication: SKIN WRINKLING
     Dosage: 18 UNITS, SINGLE
     Route: 030
     Dates: start: 20121220, end: 20121220
  2. LEVOFLOXACIN [Concomitant]
     Indication: EAR INFECTION
     Dosage: 500 MG, QD
     Route: 048
     Dates: start: 20121212, end: 20121225

REACTIONS (4)
  - Swelling face [Recovering/Resolving]
  - Injection site bruising [Recovered/Resolved]
  - Injection site erythema [Recovering/Resolving]
  - Injection site reaction [Not Recovered/Not Resolved]
